FAERS Safety Report 8583372-6 (Version None)
Quarter: 2012Q3

REPORT INFORMATION
  Report Type: 
  Country: None (occurrence: None)
  Receive Date: 20120809
  Receipt Date: 20120727
  Transmission Date: 20120928
  Serious: Yes (Disabling)
  Sender: FDA-Public Use
  Company Number: US-ROCHE-1093839

PATIENT
  Sex: Male
  Weight: 108.96 kg

DRUGS (5)
  1. LIPITOR [Suspect]
     Indication: PRODUCT USED FOR UNKNOWN INDICATION
     Route: 048
     Dates: start: 19990101
  2. LUCENTIS [Suspect]
     Indication: MACULAR DEGENERATION
     Dates: start: 20070801, end: 20080901
  3. IRBESARTAN [Concomitant]
     Indication: HYPERTENSION
  4. LUCENTIS [Suspect]
     Indication: EYE HAEMORRHAGE
  5. HYDROCHLOROTHIAZIDE [Concomitant]
     Indication: HYPERTENSION

REACTIONS (6)
  - BLINDNESS [None]
  - IMPAIRED DRIVING ABILITY [None]
  - EYE HAEMORRHAGE [None]
  - EYE DISORDER [None]
  - READING DISORDER [None]
  - MACULAR DEGENERATION [None]
